FAERS Safety Report 9224395 (Version 1)
Quarter: 2013Q1

REPORT INFORMATION
  Report Type: Spontaneous
  Country: US (occurrence: None)
  Receive Date: 20120914
  Receipt Date: 20120914
  Transmission Date: 20140127
  Serious: Yes (Other)
  Sender: FDA-Public Use
  Company Number: JPI-P-021072

PATIENT
  Sex: 0

DRUGS (3)
  1. XYREM [Suspect]
     Indication: NARCOLEPSY
     Route: 048
     Dates: start: 20110810
  2. XYREM [Suspect]
     Indication: SOMNOLENCE
     Route: 048
     Dates: start: 20110810
  3. MULTIPLE UNSPECIFIED MEDICATIONS [Concomitant]

REACTIONS (3)
  - Blood pressure increased [None]
  - Condition aggravated [None]
  - Local swelling [None]
